FAERS Safety Report 18649949 (Version 2)
Quarter: 2021Q2

REPORT INFORMATION
  Report Type: Spontaneous
  Country: VE (occurrence: VE)
  Receive Date: 20201222
  Receipt Date: 20210524
  Transmission Date: 20210717
  Serious: Yes (Death, Hospitalization, Other)
  Sender: FDA-Public Use
  Company Number: NVSC2020VE332643

PATIENT
  Sex: Male

DRUGS (2)
  1. GLIVEC [Suspect]
     Active Substance: IMATINIB MESYLATE
     Indication: CHRONIC MYELOID LEUKAEMIA
     Dosage: 4 DF
     Route: 065
  2. GLIVEC [Suspect]
     Active Substance: IMATINIB MESYLATE
     Dosage: 400 MG (4X100 MG)
     Route: 065

REACTIONS (7)
  - Malaise [Unknown]
  - Cardiac valve disease [Unknown]
  - Death [Fatal]
  - Infarction [Unknown]
  - Dyspnoea [Unknown]
  - Cardiac arrest [Unknown]
  - Cardiomegaly [Unknown]
